FAERS Safety Report 12701051 (Version 1)
Quarter: 2016Q3

REPORT INFORMATION
  Report Type: Spontaneous
  Country: US (occurrence: None)
  Receive Date: 20160830
  Receipt Date: 20160830
  Transmission Date: 20161109
  Serious: Yes (Other)
  Sender: FDA-Public Use
  Company Number: None

PATIENT
  Age: 66 Year
  Sex: Female
  Weight: 53.07 kg

DRUGS (4)
  1. RISERDRONATE SOD 150 MG TAB, 150 MG [Suspect]
     Active Substance: RISEDRONATE SODIUM
     Indication: OSTEOPOROSIS
     Route: 048
     Dates: start: 20160802, end: 20160803
  2. CLONAZEPAM. [Concomitant]
     Active Substance: CLONAZEPAM
  3. FLUTICASONE PROPIONATE. [Concomitant]
     Active Substance: FLUTICASONE PROPIONATE
  4. VITAMIN D [Concomitant]
     Active Substance: CHOLECALCIFEROL

REACTIONS (14)
  - Myalgia [None]
  - Abdominal discomfort [None]
  - Abdominal pain lower [None]
  - Speech disorder [None]
  - Gait disturbance [None]
  - Therapy non-responder [None]
  - Pain in extremity [None]
  - Back pain [None]
  - Headache [None]
  - Visual impairment [None]
  - Diarrhoea [None]
  - Pain [None]
  - Muscle spasms [None]
  - Oropharyngeal pain [None]

NARRATIVE: CASE EVENT DATE: 20160808
